FAERS Safety Report 12859728 (Version 1)
Quarter: 2016Q4

REPORT INFORMATION
  Report Type: Spontaneous
  Country: US (occurrence: US)
  Receive Date: 20161018
  Receipt Date: 20161018
  Transmission Date: 20170207
  Serious: No
  Sender: FDA-Public Use
  Company Number: US-TEIKOKU PHARMA USA-TPU2016-00687

PATIENT
  Sex: Male
  Weight: 97.61 kg

DRUGS (2)
  1. LIDODERM [Suspect]
     Active Substance: LIDOCAINE
     Indication: NEUROPATHY PERIPHERAL
     Dosage: APPLIED PATCHES AS NEEDED TO FEET AND OCCASIONALLY TO SHOULDER AND HIP
     Route: 061
     Dates: start: 2011
  2. LIDODERM [Suspect]
     Active Substance: LIDOCAINE
     Indication: BURSITIS

REACTIONS (1)
  - Drug ineffective for unapproved indication [Unknown]

NARRATIVE: CASE EVENT DATE: 2015
